FAERS Safety Report 12607690 (Version 3)
Quarter: 2016Q4

REPORT INFORMATION
  Report Type: Report from Study
  Country: CA (occurrence: CA)
  Receive Date: 20160729
  Receipt Date: 20161013
  Transmission Date: 20170207
  Serious: Yes (Other)
  Sender: FDA-Public Use
  Company Number: CA-JNJFOC-20160713046

PATIENT
  Age: 72 Year
  Sex: Male
  Weight: 66.4 kg

DRUGS (1)
  1. REMICADE [Suspect]
     Active Substance: INFLIXIMAB
     Indication: CROHN^S DISEASE
     Route: 042
     Dates: start: 20140924

REACTIONS (4)
  - Crohn^s disease [Not Recovered/Not Resolved]
  - Off label use [Unknown]
  - Intestinal resection [Unknown]
  - Product use issue [Unknown]

NARRATIVE: CASE EVENT DATE: 20140926
